FAERS Safety Report 8440071-9 (Version None)
Quarter: 2012Q2

REPORT INFORMATION
  Report Type: 
  Country: None (occurrence: None)
  Receive Date: 20120615
  Receipt Date: 20120612
  Transmission Date: 20120825
  Serious: Yes (Hospitalization, Other)
  Sender: FDA-Public Use
  Company Number: FR-NAPPMUNDI-GBR-2012-0010813

PATIENT
  Sex: Male

DRUGS (10)
  1. OXYCODONE HYDROCHLORIDE [Suspect]
     Indication: PRODUCT USED FOR UNKNOWN INDICATION
     Dosage: 5 MG, BID
     Route: 048
     Dates: start: 20120307, end: 20120322
  2. DOMPERIDONE [Suspect]
     Dosage: 10 MG, BID
     Route: 048
     Dates: start: 20120201, end: 20120330
  3. PREDNISOLONE [Suspect]
     Indication: PRODUCT USED FOR UNKNOWN INDICATION
     Dosage: UNK
     Route: 065
     Dates: start: 20120321, end: 20120323
  4. CISPLATIN [Suspect]
     Indication: LUNG SQUAMOUS CELL CARCINOMA METASTATIC
     Dosage: 143 MG, DAILY
     Route: 042
     Dates: start: 20120322, end: 20120322
  5. TAXOTERE [Suspect]
     Indication: LUNG SQUAMOUS CELL CARCINOMA METASTATIC
     Dosage: 144 MG, DAILY
     Route: 042
     Dates: start: 20120322, end: 20120322
  6. EMEND [Suspect]
     Indication: PRODUCT USED FOR UNKNOWN INDICATION
     Dosage: 125 MG, DAILY
     Route: 048
     Dates: start: 20120322, end: 20120325
  7. CORDARONE [Concomitant]
     Dosage: 200 MG, DAILY
     Route: 048
  8. POTASSIUM CHLORIDE [Concomitant]
  9. ONDANSETRON [Suspect]
     Indication: PRODUCT USED FOR UNKNOWN INDICATION
     Dosage: 8 MG, BID
     Route: 048
     Dates: start: 20120322, end: 20120325
  10. VERAPAMIL [Suspect]
     Dosage: 120 MG, DAILY
     Route: 065
     Dates: start: 20120109, end: 20120325

REACTIONS (2)
  - PANCREATITIS ACUTE [None]
  - DRUG INTOLERANCE [None]
